FAERS Safety Report 6938528-2 (Version None)
Quarter: 2010Q3

REPORT INFORMATION
  Report Type: 
  Country: None (occurrence: None)
  Receive Date: 20100824
  Receipt Date: 20100817
  Transmission Date: 20110219
  Serious: Yes (Disabling)
  Sender: FDA-Public Use
  Company Number: US-BAYER-201030671NA

PATIENT
  Age: 53 Year
  Sex: Male

DRUGS (1)
  1. AVELOX [Suspect]
     Indication: CHRONIC SINUSITIS
     Dosage: TOTAL DAILY DOSE: 400  MG  UNIT DOSE: 400 MG
     Route: 048
     Dates: start: 20100429, end: 20100430

REACTIONS (3)
  - PAIN IN EXTREMITY [None]
  - TENDON DISORDER [None]
  - TENDON PAIN [None]
